FAERS Safety Report 4555350-5 (Version None)
Quarter: 2005Q1

REPORT INFORMATION
  Report Type: 
  Country: None (occurrence: None)
  Receive Date: 20050118
  Receipt Date: 20050118
  Transmission Date: 20050727
  Serious: Yes (Other)
  Sender: FDA-Public Use
  Company Number: None

PATIENT
  Age: 52 Year
  Sex: Male
  Weight: 75.45 kg

DRUGS (1)
  1. CLOZAPINE [Suspect]
     Dosage: 650 MG QD ORAL
     Route: 048

REACTIONS (1)
  - SALIVARY HYPERSECRETION [None]
